FAERS Safety Report 18647307 (Version 8)
Quarter: 2021Q2

REPORT INFORMATION
  Report Type: Spontaneous
  Country: GB (occurrence: GB)
  Receive Date: 20201222
  Receipt Date: 20210409
  Transmission Date: 20210717
  Serious: Yes (Other)
  Sender: FDA-Public Use
  Company Number: GB-BAXTER-2020BAX022829

PATIENT
  Age: 64 Year
  Sex: Female
  Weight: 58.35 kg

DRUGS (14)
  1. PENTAMIDINE [Suspect]
     Active Substance: PENTAMIDINE
     Indication: ANTIFUNGAL PROPHYLAXIS
     Dosage: 1 DF, MONTHLY
     Route: 065
     Dates: start: 20201028
  2. PENTAMIDINE [Suspect]
     Active Substance: PENTAMIDINE
     Indication: PROPHYLAXIS
     Dosage: 1 DF, MONTHLY
     Route: 065
     Dates: start: 20201028
  3. TOLVAPTAN [Suspect]
     Active Substance: TOLVAPTAN
     Indication: HYPONATRAEMIA
     Dosage: OD
     Route: 048
     Dates: start: 20200218
  4. PENTAMIDINE ISETIONATE [Suspect]
     Active Substance: PENTAMIDINE ISETHIONATE
     Indication: NEUTROPENIA
     Dosage: 240 MG, QMO
     Route: 065
     Dates: start: 20201028
  5. SODIUM CHLORIDE 0.9% INTRAVENOUS INFUSION BP [Suspect]
     Active Substance: SODIUM CHLORIDE
     Indication: MEDICATION DILUTION
     Dosage: UNK (1), MONTHLY?UNK UNK, QMO (SOLUTION FOR INFUSION)
     Route: 042
     Dates: start: 20201028
  6. SODIUM CHLORIDE 0.9% INTRAVENOUS INFUSION BP [Suspect]
     Active Substance: SODIUM CHLORIDE
     Indication: MEDICATION DILUTION
  7. PENTAMIDINE ISETIONATE [Suspect]
     Active Substance: PENTAMIDINE ISETHIONATE
     Indication: ANTIFUNGAL PROPHYLAXIS
     Dosage: 240 MILLIGRAM, MONTHLY
     Route: 065
     Dates: start: 20201028
  8. NEUPOGEN [Suspect]
     Active Substance: FILGRASTIM
     Indication: PRODUCT USED FOR UNKNOWN INDICATION
     Route: 065
     Dates: start: 20201020
  9. ZARXIO [Suspect]
     Active Substance: FILGRASTIM-SNDZ
     Indication: NEUTROPENIA
     Dosage: PRE?FILLED SYRINGE+X100L (FILGRASTIM)
     Route: 065
  10. PENTAMIDINE [Suspect]
     Active Substance: PENTAMIDINE
     Indication: NEUTROPENIA
     Dosage: 1 DF, QMO (SOLUTION FOR INJECTION)
     Route: 065
  11. FILGRASTIM [Suspect]
     Active Substance: FILGRASTIM
     Indication: NEUTROPENIA
     Dosage: 60 MILLION IU, QW
     Route: 058
     Dates: start: 20201020
  12. WATER FOR INJECTION [Suspect]
     Active Substance: WATER
     Indication: MEDICATION DILUTION
     Dosage: UNK (1), MONTHLY
     Route: 065
     Dates: start: 20201028
  13. VALGANCICLOVIR. [Suspect]
     Active Substance: VALGANCICLOVIR
     Indication: CYTOMEGALOVIRUS CHORIORETINITIS
     Dosage: BD
     Route: 048
     Dates: start: 20200916
  14. FILGRASTIM [Suspect]
     Active Substance: FILGRASTIM
     Dosage: PRE?FILLED SYRINGE+X100L (FILGRASTIM)
     Route: 065

REACTIONS (5)
  - Infusion site erythema [Recovered/Resolved]
  - Intentional product misuse [Unknown]
  - Infusion site swelling [Recovered/Resolved]
  - Pruritus [Recovered/Resolved]
  - Off label use [Unknown]

NARRATIVE: CASE EVENT DATE: 20201020
